FAERS Safety Report 6524987-6 (Version None)
Quarter: 2010Q1

REPORT INFORMATION
  Report Type: 
  Country: None (occurrence: None)
  Receive Date: 20100104
  Receipt Date: 20091215
  Transmission Date: 20100710
  Serious: Yes (Other)
  Sender: FDA-Public Use
  Company Number: US-SANOFI-AVENTIS-2009SA002760

PATIENT
  Age: 63 Year
  Sex: Female

DRUGS (5)
  1. MULTAQ [Suspect]
     Indication: ATRIAL FIBRILLATION
     Route: 048
     Dates: start: 20091017, end: 20091020
  2. MULTAQ [Suspect]
     Indication: ATRIAL FLUTTER
     Route: 048
     Dates: start: 20091017, end: 20091020
  3. MULTAQ [Suspect]
     Dosage: 400 MG TWICE DAILY EVERY OTHER DAY OR ALTERNATING ONE DAY ON AND ONE DAY OFF
     Route: 048
     Dates: start: 20091201
  4. MULTAQ [Suspect]
     Dosage: 400 MG TWICE DAILY EVERY OTHER DAY OR ALTERNATING ONE DAY ON AND ONE DAY OFF
     Route: 048
     Dates: start: 20091201
  5. METOPROLOL TARTRATE [Concomitant]

REACTIONS (6)
  - ASTHENIA [None]
  - ATRIAL FLUTTER [None]
  - FATIGUE [None]
  - INCORRECT DOSE ADMINISTERED [None]
  - NAUSEA [None]
  - VOMITING [None]
